FAERS Safety Report 23633881 (Version 2)
Quarter: 2024Q3

REPORT INFORMATION
  Report Type: Report from Study
  Country: GB (occurrence: GB)
  Receive Date: 20240314
  Receipt Date: 20240903
  Transmission Date: 20241016
  Serious: Yes (Hospitalization)
  Sender: SANDOZ
  Company Number: GB-SANDOZ-SDZ2024GB027588

PATIENT
  Sex: Male

DRUGS (9)
  1. HYRIMOZ [Suspect]
     Active Substance: ADALIMUMAB-ADAZ
     Dosage: 40 MG, EVERY 2 WEEKS
     Route: 058
     Dates: start: 20210221, end: 20230608
  2. HYRIMOZ [Suspect]
     Active Substance: ADALIMUMAB-ADAZ
     Indication: Axial spondyloarthritis
     Dosage: 40 MG, Q2W
     Route: 058
     Dates: start: 20201104
  3. CLOPIDOGREL [Concomitant]
     Active Substance: CLOPIDOGREL BISULFATE
     Indication: Product used for unknown indication
     Route: 065
  4. LANSOPRAZOLE [Concomitant]
     Active Substance: LANSOPRAZOLE
     Indication: Product used for unknown indication
     Route: 065
  5. LANSOPRAZOLE [Concomitant]
     Active Substance: LANSOPRAZOLE
     Indication: Product used for unknown indication
     Route: 065
  6. NAPROXEN [Concomitant]
     Active Substance: NAPROXEN
     Indication: Product used for unknown indication
     Route: 065
  7. NAPROXEN [Concomitant]
     Active Substance: NAPROXEN
     Indication: Product used for unknown indication
     Route: 065
  8. STATIC [Concomitant]
     Indication: Product used for unknown indication
     Route: 065
  9. STATIC [Concomitant]
     Indication: Product used for unknown indication
     Route: 065

REACTIONS (3)
  - Abscess [Unknown]
  - Pain [Unknown]
  - Drug dose omission by device [Unknown]
